FAERS Safety Report 12281175 (Version 3)
Quarter: 2016Q2

REPORT INFORMATION
  Report Type: Spontaneous
  Country: US (occurrence: US)
  Receive Date: 20160419
  Receipt Date: 20160607
  Transmission Date: 20160815
  Serious: No
  Sender: FDA-Public Use
  Company Number: US-PFIZER INC-2016202164

PATIENT
  Age: 59 Year
  Sex: Female
  Weight: 52 kg

DRUGS (6)
  1. ADVIL [Suspect]
     Active Substance: IBUPROFEN
     Indication: INFLUENZA
     Dosage: UNK
     Dates: start: 20160327, end: 2016
  2. ADVIL [Suspect]
     Active Substance: IBUPROFEN
     Indication: MYALGIA
  3. TAMIFLU [Suspect]
     Active Substance: OSELTAMIVIR PHOSPHATE
     Indication: INFLUENZA
     Dosage: 75 MG, 2X/DAY
     Dates: end: 2016
  4. ADVIL [Suspect]
     Active Substance: IBUPROFEN
     Indication: PAIN
  5. ADVIL [Suspect]
     Active Substance: IBUPROFEN
     Indication: HEADACHE
  6. WHEAT GLUTEN [Suspect]
     Active Substance: WHEAT GLUTEN
     Dosage: UNK

REACTIONS (3)
  - Product packaging issue [Recovered/Resolved]
  - Reaction to drug excipients [Unknown]
  - Abdominal discomfort [Recovered/Resolved]

NARRATIVE: CASE EVENT DATE: 2016
